FAERS Safety Report 4661906-1 (Version None)
Quarter: 2005Q2

REPORT INFORMATION
  Report Type: 
  Country: None (occurrence: None)
  Receive Date: 20050513
  Receipt Date: 20050204
  Transmission Date: 20051028
  Serious: Yes (Disabling, Other)
  Sender: FDA-Public Use
  Company Number: US-MERCK-0502USA00773

PATIENT
  Age: 55 Year
  Sex: Female
  Weight: 130 kg

DRUGS (4)
  1. VIOXX [Suspect]
     Indication: OSTEOARTHRITIS
     Route: 048
     Dates: start: 20000217, end: 20040830
  2. VIOXX [Suspect]
     Route: 048
     Dates: start: 20000217, end: 20040830
  3. ZESTRIL [Concomitant]
     Indication: HYPERTENSION
     Route: 065
     Dates: start: 20000228
  4. ZESTRIL [Concomitant]
     Route: 065
     Dates: start: 20000228

REACTIONS (11)
  - ANXIETY [None]
  - ATRIAL FIBRILLATION [None]
  - CARDIAC DISORDER [None]
  - CARDIAC FAILURE CONGESTIVE [None]
  - DIABETES MELLITUS [None]
  - EPISTAXIS [None]
  - GASTROOESOPHAGEAL REFLUX DISEASE [None]
  - MYOCARDIAL INFARCTION [None]
  - OSTEOPOROSIS [None]
  - PELVIC FRACTURE [None]
  - UPPER LIMB FRACTURE [None]
